FAERS Safety Report 9291278 (Version 1)
Quarter: 2012Q4

REPORT INFORMATION
  Report Type: Spontaneous
  Country: AU (occurrence: None)
  Receive Date: 20121019
  Receipt Date: 20121019
  Transmission Date: 20130627
  Serious: Yes (Other)
  Sender: FDA-Public Use
  Company Number: ENTC2011-0713

PATIENT
  Sex: Female

DRUGS (1)
  1. STALEVO (LEVODOPA, CARBIDOPA, ENTACAPONE) [Suspect]
     Dosage: NASOGASTRIC

REACTIONS (3)
  - Convulsion [None]
  - Incorrect route of drug administration [None]
  - Dysphagia [None]
